FAERS Safety Report 24768125 (Version 1)
Quarter: 2024Q4

REPORT INFORMATION
  Report Type: Other
  Country: IT (occurrence: IT)
  Receive Date: 20241223
  Receipt Date: 20241223
  Transmission Date: 20250114
  Serious: Yes (Hospitalization, Other)
  Sender: EYWA PHARMA INC.
  Company Number: IT-Eywa Pharma Inc.-2167639

PATIENT
  Age: 63 Year
  Sex: Female

DRUGS (3)
  1. VALPROIC ACID [Suspect]
     Active Substance: VALPROIC ACID
     Indication: Partial seizures
  2. CENOBAMATE [Interacting]
     Active Substance: CENOBAMATE
  3. BRIVARACETAM [Concomitant]
     Active Substance: BRIVARACETAM

REACTIONS (3)
  - Drug-induced liver injury [Recovered/Resolved]
  - Drug interaction [Unknown]
  - Encephalopathy [Recovered/Resolved]
